FAERS Safety Report 4352547-4 (Version None)
Quarter: 2004Q2

REPORT INFORMATION
  Report Type: 
  Country: None (occurrence: None)
  Receive Date: 20040428
  Receipt Date: 20040415
  Transmission Date: 20050107
  Serious: Yes (Death, Hospitalization)
  Sender: FDA-Public Use
  Company Number: 2004026158

PATIENT
  Age: 75 Year
  Sex: Male

DRUGS (4)
  1. TAHOR (ATORVASTATIN) [Suspect]
     Indication: HYPERCHOLESTEROLAEMIA
     Dosage: 20 MG
     Dates: start: 19990101, end: 20031001
  2. ORAL ANTIDIABETICS (ORAL ANTIDIABETICS) [Concomitant]
  3. TICLOPIDINE (TICLOPIDINE) [Concomitant]
  4. ACETAMINOPHEN [Concomitant]

REACTIONS (13)
  - CARDIOMEGALY [None]
  - CHOLELITHIASIS [None]
  - COAGULATION FACTOR V LEVEL DECREASED [None]
  - CYTOLYTIC HEPATITIS [None]
  - ELECTROCARDIOGRAM Q WAVES [None]
  - HEPATIC FAILURE [None]
  - HYPERKALAEMIA [None]
  - LEUKOCYTOSIS [None]
  - PROTHROMBIN TIME SHORTENED [None]
  - PYREXIA [None]
  - RENAL FAILURE ACUTE [None]
  - RHABDOMYOLYSIS [None]
  - SYSTEMIC INFLAMMATORY RESPONSE SYNDROME [None]
